FAERS Safety Report 18411435 (Version 2)
Quarter: 2020Q4

REPORT INFORMATION
  Report Type: Spontaneous
  Country: US (occurrence: US)
  Receive Date: 20201021
  Receipt Date: 20201202
  Transmission Date: 20210114
  Serious: No
  Sender: FDA-Public Use
  Company Number: US-PFIZER INC-2020294788

PATIENT
  Age: 13 Year
  Sex: Male
  Weight: 39.46 kg

DRUGS (2)
  1. GENOTROPIN [Suspect]
     Active Substance: SOMATROPIN
     Dosage: 1.8 MG, 1X/DAY
  2. GENOTROPIN [Suspect]
     Active Substance: SOMATROPIN
     Indication: GROWTH HORMONE DEFICIENCY
     Dosage: 1.8 MG, 1X/DAY
     Dates: start: 2018

REACTIONS (3)
  - Circumstance or information capable of leading to medication error [Unknown]
  - Injection site mass [Unknown]
  - Device use issue [Unknown]
